FAERS Safety Report 9418257 (Version 2)
Quarter: 2013Q3

REPORT INFORMATION
  Report Type: Spontaneous
  Country: CN (occurrence: CN)
  Receive Date: 20130724
  Receipt Date: 20130823
  Transmission Date: 20140515
  Serious: Yes (Other)
  Sender: FDA-Public Use
  Company Number: CN-PFIZER INC-2013214550

PATIENT
  Age: 45 Year
  Sex: Male

DRUGS (1)
  1. PANTOLOC [Suspect]
     Indication: ANTACID THERAPY
     Dosage: 40 MG, 2X/DAY (GTT)
     Route: 042
     Dates: start: 20081224, end: 20081226

REACTIONS (1)
  - Visual impairment [Not Recovered/Not Resolved]
